FAERS Safety Report 17464989 (Version 1)
Quarter: 2020Q1

REPORT INFORMATION
  Report Type: Spontaneous
  Country: US (occurrence: US)
  Receive Date: 20200226
  Receipt Date: 20200226
  Transmission Date: 20200409
  Serious: No
  Sender: FDA-Public Use
  Company Number: US-ROCHE-2398537

PATIENT
  Sex: Male

DRUGS (1)
  1. ALECENSA [Suspect]
     Active Substance: ALECTINIB HYDROCHLORIDE
     Indication: LUNG NEOPLASM MALIGNANT
     Dosage: DATE OF LAST DOSE PRIOR TO THE EVENT 18/APR/2019
     Route: 065
     Dates: start: 20190329

REACTIONS (3)
  - Fatigue [Unknown]
  - Pain in extremity [Unknown]
  - Constipation [Unknown]
